FAERS Safety Report 22137691 (Version 4)
Quarter: 2023Q4

REPORT INFORMATION
  Report Type: Report from Study
  Country: US (occurrence: US)
  Receive Date: 20230325
  Receipt Date: 20231208
  Transmission Date: 20240110
  Serious: No
  Sender: FDA-Public Use
  Company Number: US-002147023-NVSC2023US068717

PATIENT
  Sex: Female

DRUGS (2)
  1. ILARIS [Suspect]
     Active Substance: CANAKINUMAB
     Indication: Arthralgia
     Dosage: 150 MG ONCE EVERY 8 WEEKS
     Route: 058
     Dates: start: 20200128
  2. ILARIS [Suspect]
     Active Substance: CANAKINUMAB
     Indication: Cryopyrin associated periodic syndrome

REACTIONS (2)
  - Pain [Not Recovered/Not Resolved]
  - Product dose omission issue [Unknown]
